FAERS Safety Report 11156926 (Version 1)
Quarter: 2015Q2

REPORT INFORMATION
  Report Type: Spontaneous
  Country: MX (occurrence: MX)
  Receive Date: 20150602
  Receipt Date: 20150602
  Transmission Date: 20150821
  Serious: Yes (Other)
  Sender: FDA-Public Use
  Company Number: PHHY2015MX062863

PATIENT
  Age: 5 Year

DRUGS (1)
  1. SULFAMETHOXAZOLE AND TRIMETHOPRIM [Suspect]
     Active Substance: SULFAMETHOXAZOLE\TRIMETHOPRIM
     Indication: PRODUCT USED FOR UNKNOWN INDICATION

REACTIONS (6)
  - Dry skin [Recovered/Resolved]
  - Scratch [Recovered/Resolved]
  - Hepatomegaly [Recovered/Resolved]
  - Urticaria [Recovered/Resolved]
  - Abdominal distension [Recovered/Resolved]
  - Angioedema [Recovered/Resolved]
